FAERS Safety Report 9747066 (Version 2)
Quarter: 2014Q2

REPORT INFORMATION
  Report Type: Spontaneous
  Country: US (occurrence: US)
  Receive Date: 20131211
  Receipt Date: 20140404
  Transmission Date: 20141212
  Serious: Yes (Hospitalization)
  Sender: FDA-Public Use
  Company Number: US-B.I. PHARMACEUTICALS,INC./RIDGEFIELD-2013-BI-40843BP

PATIENT
  Sex: Male
  Weight: 117.93 kg

DRUGS (10)
  1. PRADAXA [Suspect]
     Indication: ATRIAL FIBRILLATION
     Dosage: 300 MG
     Route: 048
     Dates: start: 20101209, end: 20101221
  2. PRADAXA [Suspect]
     Indication: ANTICOAGULANT THERAPY
  3. PREDNISONE [Concomitant]
     Route: 065
  4. DOCUSATE [Concomitant]
     Route: 065
  5. FERROUS SO4 [Concomitant]
     Route: 065
  6. TRAZODONE HCL [Concomitant]
     Route: 065
  7. MULTIVITAMIN [Concomitant]
     Route: 065
  8. PERCOCET [Concomitant]
     Route: 065
     Dates: start: 2007
  9. CLONAZEPAM [Concomitant]
     Route: 065
     Dates: start: 2006
  10. POTASSIUM CHLORIDE [Concomitant]
     Route: 065
     Dates: start: 2006

REACTIONS (3)
  - Gastrointestinal haemorrhage [Unknown]
  - Retroperitoneal haemorrhage [Unknown]
  - Anaemia [Unknown]
